FAERS Safety Report 21759689 (Version 1)
Quarter: 2022Q4

REPORT INFORMATION
  Report Type: Spontaneous
  Country: US (occurrence: US)
  Receive Date: 20221221
  Receipt Date: 20221221
  Transmission Date: 20230113
  Serious: No
  Sender: FDA-Public Use
  Company Number: US-drreddys-SPO/USA/22/0157989

PATIENT
  Age: 48 Year
  Sex: Female

DRUGS (1)
  1. ZENATANE [Suspect]
     Active Substance: ISOTRETINOIN
     Indication: Acne
     Dosage: RMA ISSUE DATE: 15 JULY 2022 10:27:56 AM, 16 AUGUST 2022 10:04:03 AM, 20 SEPTEMBER 2022 03:36:39 PM,

REACTIONS (1)
  - Treatment noncompliance [Unknown]
